FAERS Safety Report 8855995 (Version 1)
Quarter: 2012Q4

REPORT INFORMATION
  Report Type: Spontaneous
  Country: US (occurrence: None)
  Receive Date: 20121022
  Receipt Date: 20121022
  Transmission Date: 20130627
  Serious: No
  Sender: FDA-Public Use
  Company Number: None

PATIENT
  Sex: Female
  Weight: 63.5 kg

DRUGS (1)
  1. BOTOX [Suspect]
     Indication: THERAPEUTIC PROCEDURE
     Dosage: 2 X year
     Route: 030
     Dates: start: 20120924, end: 20120924

REACTIONS (2)
  - Headache [None]
  - Muscle disorder [None]
